FAERS Safety Report 7672296-4 (Version None)
Quarter: 2011Q3

REPORT INFORMATION
  Report Type: 
  Country: None (occurrence: None)
  Receive Date: 20110804
  Receipt Date: 20110718
  Transmission Date: 20111222
  Serious: Yes (Death, Hospitalization, Other)
  Sender: FDA-Public Use
  Company Number: 20110537

PATIENT
  Age: 45 Year
  Sex: Male

DRUGS (8)
  1. DEXAMETHASONE SODIUM PHOSPHATE [Suspect]
     Indication: PROPHYLAXIS OF NAUSEA AND VOMITING
     Dosage: 10MG D 1-5 X3 CYCL, D 1-3 4TH INTRAVENOUS
     Route: 042
     Dates: start: 20110131, end: 20110406
  2. EMEND [Concomitant]
  3. ETOPOSIDE [Suspect]
     Indication: SEMINOMA
     Dosage: 230 MG DAY 1-5 X4
     Dates: start: 20110131, end: 20110408
  4. ZOFRAN [Concomitant]
  5. CISPLATIN [Suspect]
     Indication: SEMINOMA
     Dosage: 45 MG D 1-5 X3; 35 MG  X1 CYCLE
     Dates: start: 20110131, end: 20110408
  6. DEXAMETHASONE [Suspect]
     Indication: VOMITING
     Dosage: 2 TAB TWICE DAILY, TAPERING ORAL
     Route: 048
     Dates: start: 20110321, end: 20110325
  7. ALOXI [Concomitant]
  8. MANNITOL [Concomitant]

REACTIONS (18)
  - TINNITUS [None]
  - VOMITING [None]
  - ANAEMIA [None]
  - FALL [None]
  - DRUG INEFFECTIVE [None]
  - HEPATIC PAIN [None]
  - PRODUCT QUALITY ISSUE [None]
  - ABDOMINAL PAIN [None]
  - NEUTROPENIA [None]
  - PULMONARY EMBOLISM [None]
  - DEHYDRATION [None]
  - PAIN IN EXTREMITY [None]
  - NAUSEA [None]
  - LACTIC ACIDOSIS [None]
  - MUSCLE SPASMS [None]
  - MENTAL STATUS CHANGES [None]
  - HYPERGLYCAEMIA [None]
  - HEPATOMEGALY [None]
